FAERS Safety Report 7244200-4 (Version None)
Quarter: 2011Q1

REPORT INFORMATION
  Report Type: 
  Country: None (occurrence: None)
  Receive Date: 20110119
  Receipt Date: 20110119
  Transmission Date: 20110831
  Serious: Yes (Other)
  Sender: FDA-Public Use
  Company Number: None

PATIENT
  Sex: Male

DRUGS (1)
  1. ENBREL [Suspect]
     Dosage: 50MG EVERY WEEK SQ
     Route: 058

REACTIONS (3)
  - SECRETION DISCHARGE [None]
  - BURNING SENSATION [None]
  - RASH PAPULAR [None]
